FAERS Safety Report 7544035-9 (Version None)
Quarter: 2011Q2

REPORT INFORMATION
  Report Type: 
  Country: None (occurrence: None)
  Receive Date: 20110613
  Receipt Date: 20051005
  Transmission Date: 20111010
  Serious: Yes (Death, Hospitalization)
  Sender: FDA-Public Use
  Company Number: PHFR2003GB03971

PATIENT
  Sex: Male

DRUGS (2)
  1. CLOZAPINE [Suspect]
     Dosage: 300 MG, QD
     Route: 048
     Dates: start: 20050823
  2. CLOZAPINE [Suspect]
     Indication: SCHIZOPHRENIA
     Route: 048
     Dates: start: 19960627

REACTIONS (5)
  - INTRACRANIAL ANEURYSM [None]
  - ASTHMA [None]
  - RENAL IMPAIRMENT [None]
  - CEREBRAL HAEMORRHAGE [None]
  - LOWER RESPIRATORY TRACT INFECTION [None]
